FAERS Safety Report 12987802 (Version 5)
Quarter: 2018Q2

REPORT INFORMATION
  Report Type: Report from Study
  Country: US (occurrence: US)
  Receive Date: 20161130
  Receipt Date: 20180424
  Transmission Date: 20180711
  Serious: Yes (Other)
  Sender: FDA-Public Use
  Company Number: US-ALEXION PHARMACEUTICALS INC.-A201609201

PATIENT
  Age: 79 Year
  Sex: Female
  Weight: 53.4 kg

DRUGS (14)
  1. SOLIRIS [Suspect]
     Active Substance: ECULIZUMAB
     Dosage: 900 MG, Q2W
     Route: 042
     Dates: start: 20150706
  2. OYSCO 500+D [Concomitant]
     Indication: PRODUCT USED FOR UNKNOWN INDICATION
     Dosage: 500 MG-200 IU, BID
     Route: 048
  3. FOLIC ACID. [Concomitant]
     Active Substance: FOLIC ACID
     Indication: PRODUCT USED FOR UNKNOWN INDICATION
     Dosage: 1 MG, QD
     Route: 048
  4. SYNTHROID [Concomitant]
     Active Substance: LEVOTHYROXINE SODIUM
     Indication: PRODUCT USED FOR UNKNOWN INDICATION
     Dosage: 75 ?G, QD (IN MORNING)
     Route: 048
  5. PENICILLIN VK [Concomitant]
     Active Substance: PENICILLIN V POTASSIUM
     Indication: PROPHYLAXIS
     Dosage: 500 MG, BID
     Route: 048
  6. HYDROXYZINE HYDROCHLORIDE. [Concomitant]
     Active Substance: HYDROXYZINE HYDROCHLORIDE
     Indication: PRODUCT USED FOR UNKNOWN INDICATION
     Dosage: 25 MG, QID
     Route: 048
  7. LIDOCAINE-MENTHOL 4%-1% [Concomitant]
     Indication: PRODUCT USED FOR UNKNOWN INDICATION
     Dosage: 1 PATCH, QD
     Route: 061
  8. FLUCONAZOLE. [Concomitant]
     Active Substance: FLUCONAZOLE
     Indication: PAROXYSMAL NOCTURNAL HAEMOGLOBINURIA
     Dosage: 200 MG, QD
     Route: 048
  9. COREG [Concomitant]
     Active Substance: CARVEDILOL
     Indication: PRODUCT USED FOR UNKNOWN INDICATION
     Dosage: 6.25 MG, BID
     Route: 048
  10. SOLIRIS [Suspect]
     Active Substance: ECULIZUMAB
     Indication: PAROXYSMAL NOCTURNAL HAEMOGLOBINURIA
     Dosage: 900 MG, Q2W
     Route: 042
     Dates: start: 20150717, end: 20171025
  11. LEVAQUIN [Concomitant]
     Active Substance: LEVOFLOXACIN
     Indication: PAROXYSMAL NOCTURNAL HAEMOGLOBINURIA
     Dosage: 500 MG, QD
     Route: 048
  12. EUCERIN                            /01160201/ [Concomitant]
     Active Substance: LANOLIN\MINERAL OIL\PETROLATUM
     Indication: PRODUCT USED FOR UNKNOWN INDICATION
     Dosage: 1 APPLICATION, PRN (BID)
     Route: 061
  13. SENNA                              /00142201/ [Concomitant]
     Active Substance: SENNA LEAF
     Indication: PRODUCT USED FOR UNKNOWN INDICATION
     Dosage: 8.6 MG, QHS (PRN)
     Route: 048
  14. CALCITROL                          /00508501/ [Concomitant]
     Active Substance: CALCIUM CARBONATE\ERGOCALCIFEROL\RETINOL
     Indication: PRODUCT USED FOR UNKNOWN INDICATION
     Dosage: 0.25 ?G, BID
     Route: 048

REACTIONS (10)
  - Haematocrit decreased [Unknown]
  - Blood urea increased [Unknown]
  - Glomerular filtration rate decreased [Unknown]
  - Reticulocyte count increased [Unknown]
  - Thrombocytopenia [Unknown]
  - Pruritus [Not Recovered/Not Resolved]
  - Haemoglobin decreased [Unknown]
  - Blood creatinine increased [Unknown]
  - Blood lactate dehydrogenase increased [Unknown]
  - Pancytopenia [Unknown]

NARRATIVE: CASE EVENT DATE: 20161011
